FAERS Safety Report 23304382 (Version 1)
Quarter: 2023Q4

REPORT INFORMATION
  Report Type: Spontaneous
  Country: GB (occurrence: GB)
  Receive Date: 20231218
  Receipt Date: 20231218
  Transmission Date: 20240110
  Serious: Yes (Other)
  Sender: FDA-Public Use
  Company Number: None

PATIENT
  Age: 64 Year

DRUGS (2)
  1. CYCLOSPORINE [Suspect]
     Active Substance: CYCLOSPORINE
     Indication: Mixed connective tissue disease
     Route: 065
     Dates: end: 20231010
  2. UNSPECIFIED INGREDIENT [Concomitant]
     Active Substance: UNSPECIFIED INGREDIENT
     Indication: Chronic obstructive pulmonary disease
     Route: 065

REACTIONS (10)
  - Breast mass [Recovering/Resolving]
  - Lacrimation increased [Unknown]
  - Dysuria [Unknown]
  - Rectal tenesmus [Unknown]
  - Erythema [Recovering/Resolving]
  - Chest pain [Unknown]
  - Gait disturbance [Unknown]
  - Breast pain [Unknown]
  - Breast swelling [Recovering/Resolving]
  - Breast discomfort [Unknown]
